FAERS Safety Report 9674794 (Version 7)
Quarter: 2014Q2

REPORT INFORMATION
  Report Type: Report from Study
  Country: FR (occurrence: FR)
  Receive Date: 20131107
  Receipt Date: 20140606
  Transmission Date: 20141212
  Serious: Yes (Other)
  Sender: FDA-Public Use
  Company Number: FR-JNJFOC-20131019873

PATIENT
  Age: 11 Year
  Sex: Male
  Weight: 37 kg

DRUGS (7)
  1. REMICADE [Suspect]
     Indication: CROHN^S DISEASE
     Route: 042
  2. REMICADE [Suspect]
     Indication: CROHN^S DISEASE
     Dosage: 9TH INFLIXIMAB INFUSION
     Route: 042
     Dates: start: 20130805
  3. REMICADE [Suspect]
     Indication: CROHN^S DISEASE
     Route: 042
     Dates: start: 20121204
  4. REMICADE [Suspect]
     Indication: CROHN^S DISEASE
     Dosage: 9TH INFLIXIMAB INFUSION
     Route: 042
     Dates: start: 2013
  5. REMICADE [Suspect]
     Indication: CROHN^S DISEASE
     Dosage: 9TH INFLIXIMAB INFUSION
     Route: 042
     Dates: start: 2013
  6. METHOTREXATE [Concomitant]
     Route: 065
  7. METHOTREXATE [Concomitant]
     Route: 065

REACTIONS (1)
  - Crohn^s disease [Recovered/Resolved]
